FAERS Safety Report 25104356 (Version 2)
Quarter: 2025Q2

REPORT INFORMATION
  Report Type: Spontaneous
  Country: CA (occurrence: CA)
  Receive Date: 20250321
  Receipt Date: 20250415
  Transmission Date: 20250716
  Serious: Yes (Death, Life-Threatening, Hospitalization, Disabling, Other)
  Sender: SANDOZ
  Company Number: CA-002147023-NVSC2023CA159433

PATIENT
  Age: 44 Year
  Sex: Female
  Weight: 97 kg

DRUGS (488)
  1. ALENDRONIC ACID [Suspect]
     Active Substance: ALENDRONIC ACID
     Indication: Rheumatoid arthritis
     Route: 065
  2. ALENDRONIC ACID [Suspect]
     Active Substance: ALENDRONIC ACID
     Route: 065
  3. ALENDRONIC ACID [Suspect]
     Active Substance: ALENDRONIC ACID
     Route: 016
  4. ALENDRONIC ACID [Suspect]
     Active Substance: ALENDRONIC ACID
     Indication: Product used for unknown indication
     Route: 048
  5. ALENDRONIC ACID [Suspect]
     Active Substance: ALENDRONIC ACID
     Route: 048
  6. ALENDRONIC ACID [Suspect]
     Active Substance: ALENDRONIC ACID
     Route: 048
  7. ALENDRONIC ACID [Suspect]
     Active Substance: ALENDRONIC ACID
     Route: 048
  8. ALENDRONIC ACID [Suspect]
     Active Substance: ALENDRONIC ACID
     Route: 065
  9. ALENDRONIC ACID [Suspect]
     Active Substance: ALENDRONIC ACID
     Route: 065
  10. ALENDRONIC ACID [Suspect]
     Active Substance: ALENDRONIC ACID
     Route: 065
  11. ACETAMINOPHEN [Suspect]
     Active Substance: ACETAMINOPHEN
     Indication: Pain
     Route: 065
  12. ACETAMINOPHEN [Suspect]
     Active Substance: ACETAMINOPHEN
     Route: 065
  13. ACETAMINOPHEN [Suspect]
     Active Substance: ACETAMINOPHEN
     Indication: Pyrexia
     Route: 065
  14. ACETAMINOPHEN [Suspect]
     Active Substance: ACETAMINOPHEN
     Route: 065
  15. ACETAMINOPHEN [Suspect]
     Active Substance: ACETAMINOPHEN
     Route: 065
  16. ACETAMINOPHEN [Suspect]
     Active Substance: ACETAMINOPHEN
     Indication: Rheumatoid arthritis
     Route: 065
  17. ACTEMRA [Suspect]
     Active Substance: TOCILIZUMAB
     Route: 042
  18. ACTEMRA [Suspect]
     Active Substance: TOCILIZUMAB
     Route: 058
  19. ACTEMRA [Suspect]
     Active Substance: TOCILIZUMAB
     Route: 048
  20. ACTEMRA [Suspect]
     Active Substance: TOCILIZUMAB
     Route: 065
  21. ACTEMRA [Suspect]
     Active Substance: TOCILIZUMAB
     Route: 048
  22. ACTEMRA [Suspect]
     Active Substance: TOCILIZUMAB
     Route: 065
  23. ACTEMRA [Suspect]
     Active Substance: TOCILIZUMAB
     Dosage: 2912 MG, QW
     Route: 042
  24. ACTEMRA [Suspect]
     Active Substance: TOCILIZUMAB
     Dosage: 2912 MG, QW
     Route: 065
  25. ACTEMRA [Suspect]
     Active Substance: TOCILIZUMAB
     Route: 042
  26. ACTEMRA [Suspect]
     Active Substance: TOCILIZUMAB
     Route: 042
  27. ACTEMRA [Suspect]
     Active Substance: TOCILIZUMAB
     Route: 065
  28. ACTEMRA [Suspect]
     Active Substance: TOCILIZUMAB
     Route: 042
  29. ACTEMRA [Suspect]
     Active Substance: TOCILIZUMAB
     Route: 042
  30. ACTEMRA [Suspect]
     Active Substance: TOCILIZUMAB
     Indication: Product used for unknown indication
     Dosage: 3011.2 MG, QW
     Route: 058
  31. ACTEMRA [Suspect]
     Active Substance: TOCILIZUMAB
     Route: 042
  32. ACTEMRA [Suspect]
     Active Substance: TOCILIZUMAB
     Route: 042
  33. ACTEMRA [Suspect]
     Active Substance: TOCILIZUMAB
     Route: 042
  34. ACTEMRA [Suspect]
     Active Substance: TOCILIZUMAB
     Route: 042
  35. ACTEMRA [Suspect]
     Active Substance: TOCILIZUMAB
     Route: 065
  36. ACTEMRA [Suspect]
     Active Substance: TOCILIZUMAB
     Dosage: 752 MG, QW
     Route: 042
  37. ACTEMRA [Suspect]
     Active Substance: TOCILIZUMAB
     Route: 065
  38. ACTEMRA [Suspect]
     Active Substance: TOCILIZUMAB
     Route: 042
  39. ACTEMRA [Suspect]
     Active Substance: TOCILIZUMAB
     Route: 042
  40. ACTEMRA [Suspect]
     Active Substance: TOCILIZUMAB
     Dosage: 1 UNK, QW
     Route: 058
  41. ACTEMRA [Suspect]
     Active Substance: TOCILIZUMAB
     Route: 016
  42. ACTEMRA [Suspect]
     Active Substance: TOCILIZUMAB
     Route: 016
  43. ACTEMRA [Suspect]
     Active Substance: TOCILIZUMAB
     Route: 016
  44. ACTEMRA [Suspect]
     Active Substance: TOCILIZUMAB
     Route: 042
  45. ACTEMRA [Suspect]
     Active Substance: TOCILIZUMAB
     Indication: Rheumatoid arthritis
     Route: 058
  46. ACTEMRA [Suspect]
     Active Substance: TOCILIZUMAB
     Route: 058
  47. ACTEMRA [Suspect]
     Active Substance: TOCILIZUMAB
     Route: 061
  48. ACTEMRA [Suspect]
     Active Substance: TOCILIZUMAB
     Route: 065
  49. PREDNISONE [Suspect]
     Active Substance: PREDNISONE
     Indication: Psoriatic arthropathy
     Route: 065
  50. PREDNISONE [Suspect]
     Active Substance: PREDNISONE
     Indication: Synovitis
     Route: 065
  51. PREDNISONE [Suspect]
     Active Substance: PREDNISONE
     Indication: Systemic lupus erythematosus
     Route: 048
  52. PREDNISONE [Suspect]
     Active Substance: PREDNISONE
     Indication: Bursitis
     Route: 048
  53. PREDNISONE [Suspect]
     Active Substance: PREDNISONE
     Indication: Product used for unknown indication
     Route: 065
  54. PREDNISONE [Suspect]
     Active Substance: PREDNISONE
     Indication: Rheumatoid arthritis
     Route: 048
  55. PREDNISONE [Suspect]
     Active Substance: PREDNISONE
     Route: 048
  56. PREDNISONE [Suspect]
     Active Substance: PREDNISONE
     Indication: Inflammation
     Route: 065
  57. PREDNISONE [Suspect]
     Active Substance: PREDNISONE
     Indication: Pemphigus
     Route: 065
  58. APREPITANT [Suspect]
     Active Substance: APREPITANT
     Indication: Product used for unknown indication
     Route: 065
  59. APREPITANT [Suspect]
     Active Substance: APREPITANT
     Route: 048
  60. APREPITANT [Suspect]
     Active Substance: APREPITANT
     Route: 042
  61. APREPITANT [Suspect]
     Active Substance: APREPITANT
     Route: 042
  62. CELECOXIB [Suspect]
     Active Substance: CELECOXIB
     Route: 065
  63. CELECOXIB [Suspect]
     Active Substance: CELECOXIB
     Route: 048
  64. CELECOXIB [Suspect]
     Active Substance: CELECOXIB
     Indication: Rheumatoid arthritis
     Dosage: 2 DF, QW
     Route: 048
  65. CELECOXIB [Suspect]
     Active Substance: CELECOXIB
     Indication: Arthritis
     Route: 065
  66. CELECOXIB [Suspect]
     Active Substance: CELECOXIB
     Route: 065
  67. CALCIUM CARBONATE [Suspect]
     Active Substance: CALCIUM CARBONATE
     Route: 065
  68. CALCIUM CARBONATE [Suspect]
     Active Substance: CALCIUM CARBONATE
     Indication: Product used for unknown indication
     Route: 065
  69. CALCIUM GLUBIONATE [Suspect]
     Active Substance: CALCIUM GLUBIONATE
     Route: 016
  70. CALCIUM GLUBIONATE [Suspect]
     Active Substance: CALCIUM GLUBIONATE
     Route: 065
  71. CALCIUM GLUBIONATE [Suspect]
     Active Substance: CALCIUM GLUBIONATE
     Indication: Product used for unknown indication
     Route: 065
  72. CHLORAPREP [Suspect]
     Active Substance: CHLORHEXIDINE GLUCONATE\ISOPROPYL ALCOHOL
     Route: 048
  73. CHLORAPREP [Suspect]
     Active Substance: CHLORHEXIDINE GLUCONATE\ISOPROPYL ALCOHOL
     Route: 061
  74. CHLORAPREP [Suspect]
     Active Substance: CHLORHEXIDINE GLUCONATE\ISOPROPYL ALCOHOL
     Route: 065
  75. CHLORAPREP [Suspect]
     Active Substance: CHLORHEXIDINE GLUCONATE\ISOPROPYL ALCOHOL
     Indication: Product used for unknown indication
     Route: 061
  76. CHLORHEXIDINE GLUCONATE [Suspect]
     Active Substance: CHLORHEXIDINE GLUCONATE
     Route: 002
  77. CHLORHEXIDINE GLUCONATE [Suspect]
     Active Substance: CHLORHEXIDINE GLUCONATE
     Route: 002
  78. CHLORHEXIDINE GLUCONATE [Suspect]
     Active Substance: CHLORHEXIDINE GLUCONATE
     Route: 002
  79. CHLORHEXIDINE GLUCONATE [Suspect]
     Active Substance: CHLORHEXIDINE GLUCONATE
     Route: 048
  80. CHLORHEXIDINE GLUCONATE [Suspect]
     Active Substance: CHLORHEXIDINE GLUCONATE
     Route: 048
  81. CHLORHEXIDINE GLUCONATE [Suspect]
     Active Substance: CHLORHEXIDINE GLUCONATE
     Route: 061
  82. CHLORHEXIDINE GLUCONATE [Suspect]
     Active Substance: CHLORHEXIDINE GLUCONATE
     Route: 061
  83. CHLORHEXIDINE GLUCONATE [Suspect]
     Active Substance: CHLORHEXIDINE GLUCONATE
     Route: 061
  84. CHLORHEXIDINE GLUCONATE [Suspect]
     Active Substance: CHLORHEXIDINE GLUCONATE
     Route: 061
  85. CHLORHEXIDINE GLUCONATE [Suspect]
     Active Substance: CHLORHEXIDINE GLUCONATE
     Route: 065
  86. CHLORHEXIDINE GLUCONATE [Suspect]
     Active Substance: CHLORHEXIDINE GLUCONATE
     Route: 065
  87. CHLORHEXIDINE GLUCONATE [Suspect]
     Active Substance: CHLORHEXIDINE GLUCONATE
     Route: 065
  88. CHLORHEXIDINE GLUCONATE [Suspect]
     Active Substance: CHLORHEXIDINE GLUCONATE
     Route: 065
  89. CHLORHEXIDINE GLUCONATE [Suspect]
     Active Substance: CHLORHEXIDINE GLUCONATE
     Route: 065
  90. CHLORHEXIDINE GLUCONATE [Suspect]
     Active Substance: CHLORHEXIDINE GLUCONATE
     Route: 065
  91. CHLORHEXIDINE GLUCONATE [Suspect]
     Active Substance: CHLORHEXIDINE GLUCONATE
     Route: 065
  92. CHLORHEXIDINE GLUCONATE [Suspect]
     Active Substance: CHLORHEXIDINE GLUCONATE
     Route: 065
  93. CHLORHEXIDINE GLUCONATE [Suspect]
     Active Substance: CHLORHEXIDINE GLUCONATE
     Indication: Product used for unknown indication
     Route: 002
  94. CIMZIA [Suspect]
     Active Substance: CERTOLIZUMAB PEGOL
     Indication: Psoriatic arthropathy
     Route: 058
  95. CIMZIA [Suspect]
     Active Substance: CERTOLIZUMAB PEGOL
     Route: 058
  96. CIMZIA [Suspect]
     Active Substance: CERTOLIZUMAB PEGOL
     Indication: Rheumatoid arthritis
     Route: 058
  97. CIMZIA [Suspect]
     Active Substance: CERTOLIZUMAB PEGOL
     Route: 058
  98. CIMZIA [Suspect]
     Active Substance: CERTOLIZUMAB PEGOL
     Route: 065
  99. CIMZIA [Suspect]
     Active Substance: CERTOLIZUMAB PEGOL
     Route: 005
  100. CIMZIA [Suspect]
     Active Substance: CERTOLIZUMAB PEGOL
     Route: 042
  101. CIMZIA [Suspect]
     Active Substance: CERTOLIZUMAB PEGOL
     Route: 058
  102. CIMZIA [Suspect]
     Active Substance: CERTOLIZUMAB PEGOL
     Indication: Product used for unknown indication
     Route: 065
  103. CIMZIA [Suspect]
     Active Substance: CERTOLIZUMAB PEGOL
     Indication: Psoriasis
     Route: 065
  104. CIMZIA [Suspect]
     Active Substance: CERTOLIZUMAB PEGOL
     Route: 065
  105. CIMZIA [Suspect]
     Active Substance: CERTOLIZUMAB PEGOL
     Route: 065
  106. CIMZIA [Suspect]
     Active Substance: CERTOLIZUMAB PEGOL
     Route: 065
  107. CIMZIA [Suspect]
     Active Substance: CERTOLIZUMAB PEGOL
     Route: 065
  108. CORTISONE ACETATE [Suspect]
     Active Substance: CORTISONE ACETATE
     Indication: Product used for unknown indication
     Route: 061
  109. CORTISONE ACETATE [Suspect]
     Active Substance: CORTISONE ACETATE
     Route: 048
  110. CORTISONE ACETATE [Suspect]
     Active Substance: CORTISONE ACETATE
     Route: 061
  111. CORTISONE ACETATE [Suspect]
     Active Substance: CORTISONE ACETATE
     Indication: Rheumatoid arthritis
     Route: 065
  112. CORTISONE ACETATE [Suspect]
     Active Substance: CORTISONE ACETATE
     Route: 048
  113. CORTISONE ACETATE [Suspect]
     Active Substance: CORTISONE ACETATE
     Route: 065
  114. COSENTYX [Suspect]
     Active Substance: SECUKINUMAB
     Indication: Psoriatic arthropathy
     Route: 005
  115. COSENTYX [Suspect]
     Active Substance: SECUKINUMAB
     Indication: Rheumatoid arthritis
     Route: 065
  116. DICLOFENAC [Suspect]
     Active Substance: DICLOFENAC
     Indication: Product used for unknown indication
     Route: 065
  117. DICLOFENAC [Suspect]
     Active Substance: DICLOFENAC
     Route: 031
  118. DICLOFENAC [Suspect]
     Active Substance: DICLOFENAC
     Route: 048
  119. DICLOFENAC [Suspect]
     Active Substance: DICLOFENAC
     Route: 058
  120. DICLOFENAC POTASSIUM [Suspect]
     Active Substance: DICLOFENAC POTASSIUM
     Route: 065
  121. DICLOFENAC POTASSIUM [Suspect]
     Active Substance: DICLOFENAC POTASSIUM
     Route: 047
  122. DICLOFENAC POTASSIUM [Suspect]
     Active Substance: DICLOFENAC POTASSIUM
     Route: 048
  123. DICLOFENAC POTASSIUM [Suspect]
     Active Substance: DICLOFENAC POTASSIUM
     Route: 048
  124. DICLOFENAC POTASSIUM [Suspect]
     Active Substance: DICLOFENAC POTASSIUM
     Indication: Product used for unknown indication
     Route: 058
  125. DICLOFENAC POTASSIUM [Suspect]
     Active Substance: DICLOFENAC POTASSIUM
     Route: 058
  126. DICLOFENAC POTASSIUM [Suspect]
     Active Substance: DICLOFENAC POTASSIUM
     Route: 065
  127. DICLOFENAC POTASSIUM [Suspect]
     Active Substance: DICLOFENAC POTASSIUM
     Route: 065
  128. DICLOFENAC POTASSIUM [Suspect]
     Active Substance: DICLOFENAC POTASSIUM
     Route: 065
  129. DICLOFENAC POTASSIUM [Suspect]
     Active Substance: DICLOFENAC POTASSIUM
     Route: 065
  130. DICLOFENAC SODIUM [Suspect]
     Active Substance: DICLOFENAC SODIUM
     Route: 065
  131. DICLOFENAC SODIUM [Suspect]
     Active Substance: DICLOFENAC SODIUM
     Route: 065
  132. DICLOFENAC SODIUM [Suspect]
     Active Substance: DICLOFENAC SODIUM
     Indication: Inflammation
     Dosage: 50 MG, QD
     Route: 065
  133. DICLOFENAC SODIUM [Suspect]
     Active Substance: DICLOFENAC SODIUM
     Dosage: UNK
     Route: 065
  134. DICLOFENAC SODIUM [Suspect]
     Active Substance: DICLOFENAC SODIUM
     Route: 065
  135. DICLOFENAC SODIUM [Suspect]
     Active Substance: DICLOFENAC SODIUM
     Route: 047
  136. DICLOFENAC SODIUM [Suspect]
     Active Substance: DICLOFENAC SODIUM
     Indication: Osteoarthritis
     Route: 065
  137. DICLOFENAC SODIUM [Suspect]
     Active Substance: DICLOFENAC SODIUM
     Route: 065
  138. DICLOFENAC SODIUM [Suspect]
     Active Substance: DICLOFENAC SODIUM
     Indication: Product used for unknown indication
     Route: 047
  139. DICLOFENAC SODIUM [Suspect]
     Active Substance: DICLOFENAC SODIUM
     Route: 048
  140. DICLOFENAC SODIUM [Suspect]
     Active Substance: DICLOFENAC SODIUM
     Route: 048
  141. DICLOFENAC SODIUM [Suspect]
     Active Substance: DICLOFENAC SODIUM
     Route: 048
  142. DICLOFENAC SODIUM [Suspect]
     Active Substance: DICLOFENAC SODIUM
     Route: 048
  143. DICLOFENAC SODIUM [Suspect]
     Active Substance: DICLOFENAC SODIUM
     Indication: Rheumatoid arthritis
     Route: 058
  144. DICLOFENAC SODIUM [Suspect]
     Active Substance: DICLOFENAC SODIUM
     Route: 065
  145. DICLOFENAC SODIUM [Suspect]
     Active Substance: DICLOFENAC SODIUM
     Route: 065
  146. DICLOFENAC SODIUM [Suspect]
     Active Substance: DICLOFENAC SODIUM
     Route: 065
  147. DICLOFENAC SODIUM [Suspect]
     Active Substance: DICLOFENAC SODIUM
     Route: 065
  148. DICLOFENAC SODIUM [Suspect]
     Active Substance: DICLOFENAC SODIUM
     Route: 065
  149. DILTIAZEM HYDROCHLORIDE [Suspect]
     Active Substance: DILTIAZEM HYDROCHLORIDE
     Route: 042
  150. DILTIAZEM HYDROCHLORIDE [Suspect]
     Active Substance: DILTIAZEM HYDROCHLORIDE
     Indication: Product used for unknown indication
     Route: 065
  151. DESOXIMETASONE [Suspect]
     Active Substance: DESOXIMETASONE
     Dosage: 25 MG, QW
     Route: 048
  152. DESOXIMETASONE [Suspect]
     Active Substance: DESOXIMETASONE
     Route: 003
  153. DESOXIMETASONE [Suspect]
     Active Substance: DESOXIMETASONE
     Route: 048
  154. DESOXIMETASONE [Suspect]
     Active Substance: DESOXIMETASONE
     Route: 048
  155. DESOXIMETASONE [Suspect]
     Active Substance: DESOXIMETASONE
     Route: 058
  156. DESOXIMETASONE [Suspect]
     Active Substance: DESOXIMETASONE
     Route: 061
  157. DESOXIMETASONE [Suspect]
     Active Substance: DESOXIMETASONE
     Route: 003
  158. DESOXIMETASONE [Suspect]
     Active Substance: DESOXIMETASONE
     Route: 003
  159. DESOXIMETASONE [Suspect]
     Active Substance: DESOXIMETASONE
     Route: 003
  160. DESOXIMETASONE [Suspect]
     Active Substance: DESOXIMETASONE
     Indication: Product used for unknown indication
     Route: 042
  161. DESOXIMETASONE [Suspect]
     Active Substance: DESOXIMETASONE
     Route: 048
  162. DESOXIMETASONE [Suspect]
     Active Substance: DESOXIMETASONE
     Route: 048
  163. DESOXIMETASONE [Suspect]
     Active Substance: DESOXIMETASONE
     Route: 048
  164. DESOXIMETASONE [Suspect]
     Active Substance: DESOXIMETASONE
     Route: 058
  165. DESOXIMETASONE [Suspect]
     Active Substance: DESOXIMETASONE
     Route: 058
  166. DESOXIMETASONE [Suspect]
     Active Substance: DESOXIMETASONE
     Route: 058
  167. DESOXIMETASONE [Suspect]
     Active Substance: DESOXIMETASONE
     Route: 058
  168. DESOXIMETASONE [Suspect]
     Active Substance: DESOXIMETASONE
     Route: 061
  169. DESOXIMETASONE [Suspect]
     Active Substance: DESOXIMETASONE
     Route: 061
  170. DESOXIMETASONE [Suspect]
     Active Substance: DESOXIMETASONE
     Route: 065
  171. DESOXIMETASONE [Suspect]
     Active Substance: DESOXIMETASONE
     Route: 065
  172. DESOXIMETASONE [Suspect]
     Active Substance: DESOXIMETASONE
     Indication: Rheumatoid arthritis
     Route: 003
  173. DICLOFENAC DIETHYLAMINE [Suspect]
     Active Substance: DICLOFENAC DIETHYLAMINE
     Route: 065
  174. DICLOFENAC DIETHYLAMINE [Suspect]
     Active Substance: DICLOFENAC DIETHYLAMINE
     Indication: Product used for unknown indication
     Route: 065
  175. DOXYCYCLINE HYCLATE [Suspect]
     Active Substance: DOXYCYCLINE HYCLATE
     Indication: Product used for unknown indication
     Route: 065
  176. ERELZI [Suspect]
     Active Substance: ETANERCEPT-SZZS
     Indication: Rheumatoid arthritis
     Dosage: 50 MG, QW
     Route: 058
  177. ERELZI [Suspect]
     Active Substance: ETANERCEPT-SZZS
     Dosage: 50 MG, QW
     Route: 058
  178. ERELZI [Suspect]
     Active Substance: ETANERCEPT-SZZS
     Indication: Product used for unknown indication
     Route: 058
  179. ERELZI [Suspect]
     Active Substance: ETANERCEPT-SZZS
     Route: 058
  180. ERELZI [Suspect]
     Active Substance: ETANERCEPT-SZZS
     Route: 065
  181. ENBREL [Suspect]
     Active Substance: ETANERCEPT
     Dosage: 20 MG, QW
     Route: 058
  182. ENBREL [Suspect]
     Active Substance: ETANERCEPT
     Dosage: 20 MG, QW
     Route: 058
  183. ENBREL [Suspect]
     Active Substance: ETANERCEPT
     Indication: Rheumatoid arthritis
     Dosage: 50 MG, QW
     Route: 058
  184. ENBREL [Suspect]
     Active Substance: ETANERCEPT
     Route: 058
  185. ENBREL [Suspect]
     Active Substance: ETANERCEPT
     Route: 058
  186. ENBREL [Suspect]
     Active Substance: ETANERCEPT
     Indication: Product used for unknown indication
     Route: 058
  187. ENBREL [Suspect]
     Active Substance: ETANERCEPT
     Indication: Psoriatic arthropathy
     Route: 065
  188. ENBREL [Suspect]
     Active Substance: ETANERCEPT
     Route: 065
  189. ENBREL [Suspect]
     Active Substance: ETANERCEPT
     Route: 065
  190. FLUMETHASONE PIVALATE [Suspect]
     Active Substance: FLUMETHASONE PIVALATE
     Indication: Product used for unknown indication
     Route: 003
  191. FLUMETHASONE PIVALATE [Suspect]
     Active Substance: FLUMETHASONE PIVALATE
     Route: 065
  192. FLUMETHASONE PIVALATE [Suspect]
     Active Substance: FLUMETHASONE PIVALATE
     Indication: Rheumatoid arthritis
     Route: 065
  193. FOLIC ACID [Suspect]
     Active Substance: FOLIC ACID
     Route: 065
  194. FOLIC ACID [Suspect]
     Active Substance: FOLIC ACID
     Dosage: 1 MG, QW
     Route: 065
  195. FOLIC ACID [Suspect]
     Active Substance: FOLIC ACID
     Dosage: 1 MG, QW
     Route: 065
  196. FOLIC ACID [Suspect]
     Active Substance: FOLIC ACID
     Route: 048
  197. FOLIC ACID [Suspect]
     Active Substance: FOLIC ACID
     Route: 048
  198. FOLIC ACID [Suspect]
     Active Substance: FOLIC ACID
     Route: 058
  199. FOLIC ACID [Suspect]
     Active Substance: FOLIC ACID
     Route: 065
  200. FOLIC ACID [Suspect]
     Active Substance: FOLIC ACID
     Route: 048
  201. FOLIC ACID [Suspect]
     Active Substance: FOLIC ACID
     Route: 065
  202. FOLIC ACID [Suspect]
     Active Substance: FOLIC ACID
     Route: 065
  203. FOLIC ACID [Suspect]
     Active Substance: FOLIC ACID
     Route: 048
  204. FOLIC ACID [Suspect]
     Active Substance: FOLIC ACID
     Route: 065
  205. FOLIC ACID [Suspect]
     Active Substance: FOLIC ACID
     Route: 065
  206. FOLIC ACID [Suspect]
     Active Substance: FOLIC ACID
     Indication: Rheumatoid arthritis
     Route: 065
  207. FOLIC ACID [Suspect]
     Active Substance: FOLIC ACID
     Route: 065
  208. FOLIC ACID [Suspect]
     Active Substance: FOLIC ACID
     Route: 065
  209. FOLIC ACID [Suspect]
     Active Substance: FOLIC ACID
     Route: 048
  210. FOLIC ACID [Suspect]
     Active Substance: FOLIC ACID
     Route: 065
  211. FOLIC ACID [Suspect]
     Active Substance: FOLIC ACID
     Route: 065
  212. FOLIC ACID [Suspect]
     Active Substance: FOLIC ACID
     Route: 065
  213. FOLIC ACID [Suspect]
     Active Substance: FOLIC ACID
     Route: 065
  214. FOLIC ACID [Suspect]
     Active Substance: FOLIC ACID
     Indication: Product used for unknown indication
     Route: 065
  215. FOLIC ACID [Suspect]
     Active Substance: FOLIC ACID
     Route: 065
  216. FOSAMAX [Suspect]
     Active Substance: ALENDRONATE SODIUM
     Route: 048
  217. FOSAMAX [Suspect]
     Active Substance: ALENDRONATE SODIUM
     Route: 048
  218. FOSAMAX [Suspect]
     Active Substance: ALENDRONATE SODIUM
     Indication: Product used for unknown indication
     Route: 005
  219. FOSAMAX [Suspect]
     Active Substance: ALENDRONATE SODIUM
     Route: 005
  220. FOSAMAX [Suspect]
     Active Substance: ALENDRONATE SODIUM
     Route: 016
  221. FOSAMAX [Suspect]
     Active Substance: ALENDRONATE SODIUM
     Route: 048
  222. FOSAMAX [Suspect]
     Active Substance: ALENDRONATE SODIUM
     Route: 048
  223. FOSAMAX [Suspect]
     Active Substance: ALENDRONATE SODIUM
     Route: 048
  224. FOSAMAX [Suspect]
     Active Substance: ALENDRONATE SODIUM
     Route: 048
  225. FOSAMAX [Suspect]
     Active Substance: ALENDRONATE SODIUM
     Indication: Rheumatoid arthritis
     Route: 058
  226. FOSAMAX [Suspect]
     Active Substance: ALENDRONATE SODIUM
     Route: 065
  227. FOSAMAX [Suspect]
     Active Substance: ALENDRONATE SODIUM
     Route: 065
  228. FOSAMAX [Suspect]
     Active Substance: ALENDRONATE SODIUM
     Route: 065
  229. HYRIMOZ [Suspect]
     Active Substance: ADALIMUMAB-ADAZ
     Route: 042
  230. HYRIMOZ [Suspect]
     Active Substance: ADALIMUMAB-ADAZ
     Indication: Psoriatic arthropathy
     Route: 058
  231. HYRIMOZ [Suspect]
     Active Substance: ADALIMUMAB-ADAZ
     Indication: Rheumatoid arthritis
     Route: 058
  232. HYRIMOZ [Suspect]
     Active Substance: ADALIMUMAB-ADAZ
     Route: 065
  233. HYRIMOZ [Suspect]
     Active Substance: ADALIMUMAB-ADAZ
     Route: 048
  234. HYRIMOZ [Suspect]
     Active Substance: ADALIMUMAB-ADAZ
     Indication: Product used for unknown indication
     Route: 058
  235. HUMIRA [Suspect]
     Active Substance: ADALIMUMAB
     Route: 058
  236. HUMIRA [Suspect]
     Active Substance: ADALIMUMAB
     Indication: Rheumatoid arthritis
     Route: 058
  237. HUMIRA [Suspect]
     Active Substance: ADALIMUMAB
     Route: 058
  238. HUMIRA [Suspect]
     Active Substance: ADALIMUMAB
     Route: 058
  239. HUMIRA [Suspect]
     Active Substance: ADALIMUMAB
     Route: 065
  240. HYDROCORTISONE SODIUM SUCCINATE [Suspect]
     Active Substance: HYDROCORTISONE SODIUM SUCCINATE
     Route: 061
  241. HYDROCORTISONE SODIUM SUCCINATE [Suspect]
     Active Substance: HYDROCORTISONE SODIUM SUCCINATE
     Indication: Product used for unknown indication
     Route: 003
  242. HYDROCORTISONE SODIUM SUCCINATE [Suspect]
     Active Substance: HYDROCORTISONE SODIUM SUCCINATE
     Route: 048
  243. HYDROCORTISONE SODIUM SUCCINATE [Suspect]
     Active Substance: HYDROCORTISONE SODIUM SUCCINATE
     Route: 058
  244. HYDROCORTISONE SODIUM SUCCINATE [Suspect]
     Active Substance: HYDROCORTISONE SODIUM SUCCINATE
     Route: 058
  245. HYDROCORTISONE SODIUM SUCCINATE [Suspect]
     Active Substance: HYDROCORTISONE SODIUM SUCCINATE
     Route: 061
  246. HYDROCORTISONE SODIUM SUCCINATE [Suspect]
     Active Substance: HYDROCORTISONE SODIUM SUCCINATE
     Route: 065
  247. HYDROCORTISONE SODIUM SUCCINATE [Suspect]
     Active Substance: HYDROCORTISONE SODIUM SUCCINATE
     Route: 065
  248. HYDROCORTISONE SODIUM SUCCINATE [Suspect]
     Active Substance: HYDROCORTISONE SODIUM SUCCINATE
     Route: 065
  249. HYDROCORTISONE SODIUM SUCCINATE [Suspect]
     Active Substance: HYDROCORTISONE SODIUM SUCCINATE
     Indication: Rheumatoid arthritis
     Route: 065
  250. HYDROXYCHLOROQUINE [Suspect]
     Active Substance: HYDROXYCHLOROQUINE
     Indication: Rheumatoid arthritis
     Route: 065
  251. HYDROXYCHLOROQUINE [Suspect]
     Active Substance: HYDROXYCHLOROQUINE
     Dosage: 400 MG
     Route: 065
  252. HYDROXYCHLOROQUINE [Suspect]
     Active Substance: HYDROXYCHLOROQUINE
     Indication: Product used for unknown indication
     Dosage: 400 MG, QD
     Route: 048
  253. HYDROXYCHLOROQUINE [Suspect]
     Active Substance: HYDROXYCHLOROQUINE
     Dosage: 400 MG, QD
     Route: 065
  254. HYDROXYCHLOROQUINE [Suspect]
     Active Substance: HYDROXYCHLOROQUINE
     Dosage: 400 MG, QD
     Route: 065
  255. HYDROXYCHLOROQUINE [Suspect]
     Active Substance: HYDROXYCHLOROQUINE
     Dosage: 400 MG, QD
     Route: 065
  256. HYDROXYCHLOROQUINE [Suspect]
     Active Substance: HYDROXYCHLOROQUINE
     Route: 065
  257. HYDROXYCHLOROQUINE [Suspect]
     Active Substance: HYDROXYCHLOROQUINE
     Route: 065
  258. HYDROXYCHLOROQUINE [Suspect]
     Active Substance: HYDROXYCHLOROQUINE
     Route: 065
  259. HYDROXYCHLOROQUINE [Suspect]
     Active Substance: HYDROXYCHLOROQUINE
     Route: 065
  260. HYDROXYCHLOROQUINE SULFATE [Suspect]
     Active Substance: HYDROXYCHLOROQUINE SULFATE
     Dosage: 400 MG, QD
     Route: 048
  261. HYDROXYCHLOROQUINE SULFATE [Suspect]
     Active Substance: HYDROXYCHLOROQUINE SULFATE
     Dosage: 400 MG, QD
     Route: 065
  262. HYDROXYCHLOROQUINE SULFATE [Suspect]
     Active Substance: HYDROXYCHLOROQUINE SULFATE
     Dosage: 400 MG, QD
     Route: 065
  263. HYDROXYCHLOROQUINE SULFATE [Suspect]
     Active Substance: HYDROXYCHLOROQUINE SULFATE
     Indication: Product used for unknown indication
     Route: 048
  264. HYDROXYCHLOROQUINE SULFATE [Suspect]
     Active Substance: HYDROXYCHLOROQUINE SULFATE
     Route: 065
  265. HYDROXYCHLOROQUINE SULFATE [Suspect]
     Active Substance: HYDROXYCHLOROQUINE SULFATE
     Indication: Rheumatoid arthritis
     Route: 048
  266. HYDROXYCHLOROQUINE SULFATE [Suspect]
     Active Substance: HYDROXYCHLOROQUINE SULFATE
     Route: 048
  267. INFLIXIMAB [Suspect]
     Active Substance: INFLIXIMAB
     Indication: Rheumatoid arthritis
     Route: 065
  268. INFLIXIMAB [Suspect]
     Active Substance: INFLIXIMAB
     Indication: Product used for unknown indication
     Route: 042
  269. INFLIXIMAB [Suspect]
     Active Substance: INFLIXIMAB
     Route: 042
  270. INFLIXIMAB [Suspect]
     Active Substance: INFLIXIMAB
     Route: 042
  271. INFLIXIMAB [Suspect]
     Active Substance: INFLIXIMAB
     Route: 065
  272. LEFLUNOMIDE [Suspect]
     Active Substance: LEFLUNOMIDE
     Route: 048
  273. LEFLUNOMIDE [Suspect]
     Active Substance: LEFLUNOMIDE
     Route: 048
  274. LEFLUNOMIDE [Suspect]
     Active Substance: LEFLUNOMIDE
     Route: 048
  275. LEFLUNOMIDE [Suspect]
     Active Substance: LEFLUNOMIDE
     Indication: Rheumatoid arthritis
     Route: 058
  276. LEFLUNOMIDE [Suspect]
     Active Substance: LEFLUNOMIDE
     Route: 048
  277. LEFLUNOMIDE [Suspect]
     Active Substance: LEFLUNOMIDE
     Route: 065
  278. METHOTREXATE [Suspect]
     Active Substance: METHOTREXATE
     Dosage: 1 DF, QD
     Route: 048
  279. METHOTREXATE [Suspect]
     Active Substance: METHOTREXATE
     Route: 048
  280. METHOTREXATE [Suspect]
     Active Substance: METHOTREXATE
     Dosage: 15 MG, QD
     Route: 048
  281. METHOTREXATE [Suspect]
     Active Substance: METHOTREXATE
     Route: 048
  282. METHOTREXATE [Suspect]
     Active Substance: METHOTREXATE
     Dosage: 2 G, QW
     Route: 048
  283. METHOTREXATE [Suspect]
     Active Substance: METHOTREXATE
     Route: 048
  284. METHOTREXATE [Suspect]
     Active Substance: METHOTREXATE
     Dosage: 2 MG, QD
     Route: 048
  285. METHOTREXATE [Suspect]
     Active Substance: METHOTREXATE
     Route: 048
  286. METHOTREXATE [Suspect]
     Active Substance: METHOTREXATE
     Dosage: 20 MG, QW
     Route: 013
  287. METHOTREXATE [Suspect]
     Active Substance: METHOTREXATE
     Dosage: 20 MG, QW
     Route: 013
  288. METHOTREXATE [Suspect]
     Active Substance: METHOTREXATE
     Dosage: 20 MG, QW
     Route: 048
  289. METHOTREXATE [Suspect]
     Active Substance: METHOTREXATE
     Dosage: 20 MG, QW
     Route: 048
  290. METHOTREXATE [Suspect]
     Active Substance: METHOTREXATE
     Dosage: 20 MG, QW
     Route: 058
  291. METHOTREXATE [Suspect]
     Active Substance: METHOTREXATE
     Dosage: 20 MG, QW
     Route: 058
  292. METHOTREXATE [Suspect]
     Active Substance: METHOTREXATE
     Dosage: 20 MG, QW
     Route: 065
  293. METHOTREXATE [Suspect]
     Active Substance: METHOTREXATE
     Dosage: 20 MG, QD
     Route: 048
  294. METHOTREXATE [Suspect]
     Active Substance: METHOTREXATE
     Dosage: 20 MG, QD
     Route: 048
  295. METHOTREXATE [Suspect]
     Active Substance: METHOTREXATE
     Dosage: 20 MG, QD
     Route: 065
  296. METHOTREXATE [Suspect]
     Active Substance: METHOTREXATE
     Route: 048
  297. METHOTREXATE [Suspect]
     Active Substance: METHOTREXATE
     Route: 048
  298. METHOTREXATE [Suspect]
     Active Substance: METHOTREXATE
     Route: 058
  299. METHOTREXATE [Suspect]
     Active Substance: METHOTREXATE
     Route: 065
  300. METHOTREXATE [Suspect]
     Active Substance: METHOTREXATE
     Route: 065
  301. METHOTREXATE [Suspect]
     Active Substance: METHOTREXATE
     Route: 048
  302. METHOTREXATE [Suspect]
     Active Substance: METHOTREXATE
     Route: 048
  303. METHOTREXATE [Suspect]
     Active Substance: METHOTREXATE
     Dosage: 25 MG, QW
     Route: 048
  304. METHOTREXATE [Suspect]
     Active Substance: METHOTREXATE
     Dosage: 25 MG, QW
     Route: 048
  305. METHOTREXATE [Suspect]
     Active Substance: METHOTREXATE
     Dosage: 25 MG, QW
     Route: 058
  306. METHOTREXATE [Suspect]
     Active Substance: METHOTREXATE
     Dosage: 25 MG, QD
     Route: 013
  307. METHOTREXATE [Suspect]
     Active Substance: METHOTREXATE
     Dosage: 25 MG, QD
     Route: 048
  308. METHOTREXATE [Suspect]
     Active Substance: METHOTREXATE
     Dosage: 25 MG, QD
     Route: 058
  309. METHOTREXATE [Suspect]
     Active Substance: METHOTREXATE
     Dosage: 25 MG, QD
     Route: 058
  310. METHOTREXATE [Suspect]
     Active Substance: METHOTREXATE
     Dosage: 25 MG, QD
     Route: 065
  311. METHOTREXATE [Suspect]
     Active Substance: METHOTREXATE
     Route: 013
  312. METHOTREXATE [Suspect]
     Active Substance: METHOTREXATE
     Route: 013
  313. METHOTREXATE [Suspect]
     Active Substance: METHOTREXATE
     Route: 048
  314. METHOTREXATE [Suspect]
     Active Substance: METHOTREXATE
     Route: 048
  315. METHOTREXATE [Suspect]
     Active Substance: METHOTREXATE
     Route: 048
  316. METHOTREXATE [Suspect]
     Active Substance: METHOTREXATE
     Route: 048
  317. METHOTREXATE [Suspect]
     Active Substance: METHOTREXATE
     Route: 048
  318. METHOTREXATE [Suspect]
     Active Substance: METHOTREXATE
     Indication: Product used for unknown indication
     Route: 058
  319. METHOTREXATE [Suspect]
     Active Substance: METHOTREXATE
     Route: 058
  320. METHOTREXATE [Suspect]
     Active Substance: METHOTREXATE
     Route: 065
  321. METHOTREXATE [Suspect]
     Active Substance: METHOTREXATE
     Dosage: 500 MG, BID
     Route: 065
  322. METHOTREXATE [Suspect]
     Active Substance: METHOTREXATE
     Route: 065
  323. METHOTREXATE [Suspect]
     Active Substance: METHOTREXATE
     Route: 013
  324. METHOTREXATE [Suspect]
     Active Substance: METHOTREXATE
     Route: 042
  325. METHOTREXATE [Suspect]
     Active Substance: METHOTREXATE
     Route: 042
  326. METHOTREXATE [Suspect]
     Active Substance: METHOTREXATE
     Indication: Rheumatoid arthritis
     Route: 048
  327. METHOTREXATE [Suspect]
     Active Substance: METHOTREXATE
     Route: 065
  328. METHOTREXATE SODIUM [Suspect]
     Active Substance: METHOTREXATE SODIUM
     Dosage: 25 MG, QW
     Route: 048
  329. METHOTREXATE SODIUM [Suspect]
     Active Substance: METHOTREXATE SODIUM
     Indication: Product used for unknown indication
     Route: 058
  330. METHOTREXATE SODIUM [Suspect]
     Active Substance: METHOTREXATE SODIUM
     Route: 048
  331. MYCOPHENOLATE MOFETIL [Suspect]
     Active Substance: MYCOPHENOLATE MOFETIL
     Indication: Product used for unknown indication
     Route: 065
  332. OXYCODONE [Suspect]
     Active Substance: OXYCODONE
     Indication: Product used for unknown indication
     Route: 065
  333. OXYCODONE [Suspect]
     Active Substance: OXYCODONE
     Route: 065
  334. OXYCODONE HYDROCHLORIDE [Suspect]
     Active Substance: OXYCODONE HYDROCHLORIDE
     Indication: Product used for unknown indication
     Route: 065
  335. ONEALFA [Suspect]
     Active Substance: ALFACALCIDOL
     Indication: Product used for unknown indication
     Route: 065
  336. ORENCIA [Suspect]
     Active Substance: ABATACEPT
     Route: 042
  337. ORENCIA [Suspect]
     Active Substance: ABATACEPT
     Dosage: 120 MG, QW
     Route: 058
  338. ORENCIA [Suspect]
     Active Substance: ABATACEPT
     Indication: Product used for unknown indication
     Route: 058
  339. ORENCIA [Suspect]
     Active Substance: ABATACEPT
     Route: 058
  340. ORENCIA [Suspect]
     Active Substance: ABATACEPT
     Route: 058
  341. ORENCIA [Suspect]
     Active Substance: ABATACEPT
     Dosage: 17.875 MG, QD
     Route: 058
  342. ORENCIA [Suspect]
     Active Substance: ABATACEPT
     Dosage: 18 MG, QD
     Route: 058
  343. ORENCIA [Suspect]
     Active Substance: ABATACEPT
     Indication: Rheumatoid arthritis
     Route: 048
  344. ORENCIA [Suspect]
     Active Substance: ABATACEPT
     Route: 065
  345. ORENCIA [Suspect]
     Active Substance: ABATACEPT
     Route: 042
  346. ORENCIA [Suspect]
     Active Substance: ABATACEPT
     Route: 065
  347. ORENCIA [Suspect]
     Active Substance: ABATACEPT
     Dosage: UNK, QW
     Route: 042
  348. ORENCIA [Suspect]
     Active Substance: ABATACEPT
     Route: 017
  349. ORENCIA [Suspect]
     Active Substance: ABATACEPT
     Route: 042
  350. ORENCIA [Suspect]
     Active Substance: ABATACEPT
     Route: 048
  351. ORENCIA [Suspect]
     Active Substance: ABATACEPT
     Route: 058
  352. ORENCIA [Suspect]
     Active Substance: ABATACEPT
     Route: 065
  353. ORENCIA [Suspect]
     Active Substance: ABATACEPT
     Route: 065
  354. PANTOPRAZOLE [Suspect]
     Active Substance: PANTOPRAZOLE
     Route: 016
  355. PANTOPRAZOLE [Suspect]
     Active Substance: PANTOPRAZOLE
     Indication: Product used for unknown indication
     Route: 065
  356. PREGABALIN [Suspect]
     Active Substance: PREGABALIN
     Indication: Product used for unknown indication
     Route: 065
  357. PERIOGARD [Suspect]
     Active Substance: CHLORHEXIDINE GLUCONATE
     Route: 065
  358. PERIOGARD [Suspect]
     Active Substance: CHLORHEXIDINE GLUCONATE
     Route: 002
  359. PERIOGARD [Suspect]
     Active Substance: CHLORHEXIDINE GLUCONATE
     Indication: Product used for unknown indication
     Route: 048
  360. PHTHALYLSULFATHIAZOLE [Suspect]
     Active Substance: PHTHALYLSULFATHIAZOLE
     Route: 048
  361. PHTHALYLSULFATHIAZOLE [Suspect]
     Active Substance: PHTHALYLSULFATHIAZOLE
     Route: 065
  362. PHTHALYLSULFATHIAZOLE [Suspect]
     Active Substance: PHTHALYLSULFATHIAZOLE
     Route: 048
  363. PHTHALYLSULFATHIAZOLE [Suspect]
     Active Substance: PHTHALYLSULFATHIAZOLE
     Indication: Product used for unknown indication
     Route: 048
  364. PHTHALYLSULFATHIAZOLE [Suspect]
     Active Substance: PHTHALYLSULFATHIAZOLE
     Route: 048
  365. PHTHALYLSULFATHIAZOLE [Suspect]
     Active Substance: PHTHALYLSULFATHIAZOLE
     Route: 048
  366. PHTHALYLSULFATHIAZOLE [Suspect]
     Active Substance: PHTHALYLSULFATHIAZOLE
     Indication: Rheumatoid arthritis
     Route: 065
  367. PHTHALYLSULFATHIAZOLE [Suspect]
     Active Substance: PHTHALYLSULFATHIAZOLE
     Route: 048
  368. PHTHALYLSULFATHIAZOLE [Suspect]
     Active Substance: PHTHALYLSULFATHIAZOLE
     Route: 048
  369. PHTHALYLSULFATHIAZOLE [Suspect]
     Active Substance: PHTHALYLSULFATHIAZOLE
     Route: 016
  370. PHTHALYLSULFATHIAZOLE [Suspect]
     Active Substance: PHTHALYLSULFATHIAZOLE
     Route: 042
  371. PHTHALYLSULFATHIAZOLE [Suspect]
     Active Substance: PHTHALYLSULFATHIAZOLE
     Route: 048
  372. PHTHALYLSULFATHIAZOLE [Suspect]
     Active Substance: PHTHALYLSULFATHIAZOLE
     Route: 058
  373. PHTHALYLSULFATHIAZOLE [Suspect]
     Active Substance: PHTHALYLSULFATHIAZOLE
     Route: 058
  374. PHTHALYLSULFATHIAZOLE [Suspect]
     Active Substance: PHTHALYLSULFATHIAZOLE
     Route: 065
  375. PREDNISOLONE [Suspect]
     Active Substance: PREDNISOLONE
     Route: 065
  376. PREDNISOLONE [Suspect]
     Active Substance: PREDNISOLONE
     Dosage: 7.5 MG, QD
     Route: 048
  377. PREDNISOLONE [Suspect]
     Active Substance: PREDNISOLONE
     Route: 065
  378. PREDNISOLONE [Suspect]
     Active Substance: PREDNISOLONE
     Indication: Product used for unknown indication
     Route: 048
  379. PREDNISONE [Suspect]
     Active Substance: PREDNISONE
     Route: 065
  380. PREDNISONE [Suspect]
     Active Substance: PREDNISONE
     Route: 048
  381. PREDNISONE [Suspect]
     Active Substance: PREDNISONE
     Indication: Rheumatoid arthritis
     Route: 048
  382. PREDNISONE [Suspect]
     Active Substance: PREDNISONE
     Indication: Product used for unknown indication
     Route: 048
  383. PREDNISONE [Suspect]
     Active Substance: PREDNISONE
     Indication: Psoriatic arthropathy
     Route: 065
  384. PREDNISONE [Suspect]
     Active Substance: PREDNISONE
     Route: 065
  385. PREDNISONE [Suspect]
     Active Substance: PREDNISONE
     Dosage: 7.5 MG, QD
     Route: 048
  386. PREDNISONE [Suspect]
     Active Substance: PREDNISONE
     Dosage: 7.5 MG, QD
     Route: 048
  387. PREDNISONE [Suspect]
     Active Substance: PREDNISONE
     Route: 042
  388. PREDNISONE [Suspect]
     Active Substance: PREDNISONE
     Route: 048
  389. PREDNISONE [Suspect]
     Active Substance: PREDNISONE
     Indication: Product used for unknown indication
     Route: 065
  390. PREDNISONE [Suspect]
     Active Substance: PREDNISONE
     Route: 065
  391. PSEUDOEPHEDRINE HYDROCHLORIDE [Suspect]
     Active Substance: PSEUDOEPHEDRINE HYDROCHLORIDE
     Route: 065
  392. PSEUDOEPHEDRINE HYDROCHLORIDE [Suspect]
     Active Substance: PSEUDOEPHEDRINE HYDROCHLORIDE
     Indication: Product used for unknown indication
     Route: 065
  393. PSEUDOEPHEDRINE HYDROCHLORIDE [Suspect]
     Active Substance: PSEUDOEPHEDRINE HYDROCHLORIDE
     Route: 065
  394. PSEUDOEPHEDRINE HYDROCHLORIDE [Suspect]
     Active Substance: PSEUDOEPHEDRINE HYDROCHLORIDE
     Route: 065
  395. RITUXIMAB [Suspect]
     Active Substance: RITUXIMAB
     Route: 016
  396. RITUXIMAB [Suspect]
     Active Substance: RITUXIMAB
     Route: 042
  397. RITUXIMAB [Suspect]
     Active Substance: RITUXIMAB
     Route: 042
  398. RITUXIMAB [Suspect]
     Active Substance: RITUXIMAB
     Route: 065
  399. RITUXIMAB [Suspect]
     Active Substance: RITUXIMAB
     Route: 065
  400. RITUXIMAB [Suspect]
     Active Substance: RITUXIMAB
     Route: 016
  401. RITUXIMAB [Suspect]
     Active Substance: RITUXIMAB
     Indication: Product used for unknown indication
     Route: 058
  402. RITUXIMAB [Suspect]
     Active Substance: RITUXIMAB
     Indication: Rheumatoid arthritis
     Route: 058
  403. CETIRIZINE HYDROCHLORIDE [Suspect]
     Active Substance: CETIRIZINE HYDROCHLORIDE
     Indication: Rheumatoid arthritis
     Dosage: 10 MG, QD
     Route: 065
  404. CETIRIZINE HYDROCHLORIDE [Suspect]
     Active Substance: CETIRIZINE HYDROCHLORIDE
     Indication: Product used for unknown indication
     Route: 065
  405. CETIRIZINE HYDROCHLORIDE [Suspect]
     Active Substance: CETIRIZINE HYDROCHLORIDE
     Route: 016
  406. CETIRIZINE HYDROCHLORIDE\PSEUDOEPHEDRINE HYDROCHLORIDE [Suspect]
     Active Substance: CETIRIZINE HYDROCHLORIDE\PSEUDOEPHEDRINE HYDROCHLORIDE
     Indication: Rheumatoid arthritis
     Route: 048
  407. CETIRIZINE HYDROCHLORIDE\PSEUDOEPHEDRINE HYDROCHLORIDE [Suspect]
     Active Substance: CETIRIZINE HYDROCHLORIDE\PSEUDOEPHEDRINE HYDROCHLORIDE
     Route: 065
  408. CETIRIZINE HYDROCHLORIDE\PSEUDOEPHEDRINE HYDROCHLORIDE [Suspect]
     Active Substance: CETIRIZINE HYDROCHLORIDE\PSEUDOEPHEDRINE HYDROCHLORIDE
     Indication: Product used for unknown indication
     Route: 065
  409. CETIRIZINE HYDROCHLORIDE\PSEUDOEPHEDRINE HYDROCHLORIDE [Suspect]
     Active Substance: CETIRIZINE HYDROCHLORIDE\PSEUDOEPHEDRINE HYDROCHLORIDE
     Route: 065
  410. CETIRIZINE HYDROCHLORIDE\PSEUDOEPHEDRINE HYDROCHLORIDE [Suspect]
     Active Substance: CETIRIZINE HYDROCHLORIDE\PSEUDOEPHEDRINE HYDROCHLORIDE
     Route: 065
  411. REMICADE [Suspect]
     Active Substance: INFLIXIMAB
     Route: 042
  412. REMICADE [Suspect]
     Active Substance: INFLIXIMAB
     Indication: Product used for unknown indication
     Route: 065
  413. REMICADE [Suspect]
     Active Substance: INFLIXIMAB
     Indication: Rheumatoid arthritis
     Route: 065
  414. SIMPONI [Suspect]
     Active Substance: GOLIMUMAB
     Indication: Rheumatoid arthritis
     Route: 042
  415. SIMPONI [Suspect]
     Active Substance: GOLIMUMAB
     Route: 052
  416. SIMPONI [Suspect]
     Active Substance: GOLIMUMAB
     Route: 058
  417. SIMPONI [Suspect]
     Active Substance: GOLIMUMAB
     Route: 058
  418. SIMPONI [Suspect]
     Active Substance: GOLIMUMAB
     Indication: Product used for unknown indication
     Route: 065
  419. STELARA [Suspect]
     Active Substance: USTEKINUMAB
     Indication: Rheumatoid arthritis
     Route: 042
  420. STELARA [Suspect]
     Active Substance: USTEKINUMAB
     Indication: Product used for unknown indication
     Route: 058
  421. STELARA [Suspect]
     Active Substance: USTEKINUMAB
     Route: 042
  422. STELARA [Suspect]
     Active Substance: USTEKINUMAB
     Route: 058
  423. SULFAMETHOXAZOLE\TRIMETHOPRIM [Suspect]
     Active Substance: SULFAMETHOXAZOLE\TRIMETHOPRIM
     Route: 065
  424. SULFAMETHOXAZOLE\TRIMETHOPRIM [Suspect]
     Active Substance: SULFAMETHOXAZOLE\TRIMETHOPRIM
     Route: 065
  425. SULFAMETHOXAZOLE\TRIMETHOPRIM [Suspect]
     Active Substance: SULFAMETHOXAZOLE\TRIMETHOPRIM
     Route: 067
  426. SULFAMETHOXAZOLE\TRIMETHOPRIM [Suspect]
     Active Substance: SULFAMETHOXAZOLE\TRIMETHOPRIM
     Indication: Product used for unknown indication
     Route: 065
  427. SULFASALAZINE [Suspect]
     Active Substance: SULFASALAZINE
     Dosage: 1 G, QD
     Route: 048
  428. SULFASALAZINE [Suspect]
     Active Substance: SULFASALAZINE
     Dosage: 1 G, QD
     Route: 048
  429. SULFASALAZINE [Suspect]
     Active Substance: SULFASALAZINE
     Route: 048
  430. SULFASALAZINE [Suspect]
     Active Substance: SULFASALAZINE
     Route: 048
  431. SULFASALAZINE [Suspect]
     Active Substance: SULFASALAZINE
     Route: 058
  432. SULFASALAZINE [Suspect]
     Active Substance: SULFASALAZINE
     Route: 065
  433. SULFASALAZINE [Suspect]
     Active Substance: SULFASALAZINE
     Route: 048
  434. SULFASALAZINE [Suspect]
     Active Substance: SULFASALAZINE
     Dosage: 1 DF, QD
     Route: 048
  435. SULFASALAZINE [Suspect]
     Active Substance: SULFASALAZINE
     Route: 048
  436. SULFASALAZINE [Suspect]
     Active Substance: SULFASALAZINE
     Route: 048
  437. SULFASALAZINE [Suspect]
     Active Substance: SULFASALAZINE
     Route: 048
  438. SULFASALAZINE [Suspect]
     Active Substance: SULFASALAZINE
     Route: 048
  439. SULFASALAZINE [Suspect]
     Active Substance: SULFASALAZINE
     Route: 048
  440. SULFASALAZINE [Suspect]
     Active Substance: SULFASALAZINE
     Route: 048
  441. SULFASALAZINE [Suspect]
     Active Substance: SULFASALAZINE
     Dosage: 2000 MG, QD
     Route: 048
  442. SULFASALAZINE [Suspect]
     Active Substance: SULFASALAZINE
     Route: 048
  443. SULFASALAZINE [Suspect]
     Active Substance: SULFASALAZINE
     Route: 048
  444. SULFASALAZINE [Suspect]
     Active Substance: SULFASALAZINE
     Route: 048
  445. SULFASALAZINE [Suspect]
     Active Substance: SULFASALAZINE
     Route: 048
  446. SULFASALAZINE [Suspect]
     Active Substance: SULFASALAZINE
     Route: 048
  447. SULFASALAZINE [Suspect]
     Active Substance: SULFASALAZINE
     Route: 065
  448. SULFASALAZINE [Suspect]
     Active Substance: SULFASALAZINE
     Indication: Rheumatoid arthritis
     Dosage: 4000 MG, QD
     Route: 048
  449. SULFASALAZINE [Suspect]
     Active Substance: SULFASALAZINE
     Route: 048
  450. SULFASALAZINE [Suspect]
     Active Substance: SULFASALAZINE
     Route: 048
  451. SULFASALAZINE [Suspect]
     Active Substance: SULFASALAZINE
     Route: 048
  452. SULFASALAZINE [Suspect]
     Active Substance: SULFASALAZINE
     Indication: Product used for unknown indication
     Route: 058
  453. SULFASALAZINE [Suspect]
     Active Substance: SULFASALAZINE
     Dosage: 500 UNK, QD
     Route: 048
  454. SULFASALAZINE [Suspect]
     Active Substance: SULFASALAZINE
     Route: 048
  455. SULFASALAZINE [Suspect]
     Active Substance: SULFASALAZINE
     Route: 058
  456. SULFASALAZINE [Suspect]
     Active Substance: SULFASALAZINE
     Route: 065
  457. SULFASALAZINE [Suspect]
     Active Substance: SULFASALAZINE
     Route: 065
  458. SULFASALAZINE [Suspect]
     Active Substance: SULFASALAZINE
     Route: 065
  459. SULFASALAZINE [Suspect]
     Active Substance: SULFASALAZINE
     Route: 065
  460. TOFACITINIB CITRATE [Suspect]
     Active Substance: TOFACITINIB CITRATE
     Dosage: 5 MG, QW
     Route: 048
  461. TOFACITINIB CITRATE [Suspect]
     Active Substance: TOFACITINIB CITRATE
     Dosage: 5 MG, QW (1 EVERY .5 DAYS)
     Route: 048
  462. TOFACITINIB CITRATE [Suspect]
     Active Substance: TOFACITINIB CITRATE
     Indication: Psoriatic arthropathy
     Route: 048
  463. TOFACITINIB CITRATE [Suspect]
     Active Substance: TOFACITINIB CITRATE
     Indication: Rheumatoid arthritis
     Route: 058
  464. TOFACITINIB CITRATE [Suspect]
     Active Substance: TOFACITINIB CITRATE
     Indication: Product used for unknown indication
     Route: 065
  465. TRIAMCINOLONE ACETONIDE [Suspect]
     Active Substance: TRIAMCINOLONE ACETONIDE
     Indication: Rheumatoid arthritis
     Route: 014
  466. TUMS [Suspect]
     Active Substance: CALCIUM CARBONATE
     Indication: Product used for unknown indication
     Route: 065
  467. TUMS [Suspect]
     Active Substance: CALCIUM CARBONATE
     Route: 065
  468. VOLTAREN [Suspect]
     Active Substance: DICLOFENAC SODIUM
     Indication: Product used for unknown indication
     Route: 065
  469. VOLTAREN [Suspect]
     Active Substance: DICLOFENAC SODIUM
     Route: 065
  470. VOLTAREN [Suspect]
     Active Substance: DICLOFENAC SODIUM
     Route: 048
  471. VOLTAREN [Suspect]
     Active Substance: DICLOFENAC SODIUM
     Route: 058
  472. VOLTAREN [Suspect]
     Active Substance: DICLOFENAC SODIUM
     Route: 065
  473. VOLTAREN [Suspect]
     Active Substance: DICLOFENAC SODIUM
     Route: 065
  474. PREDNISONE [Suspect]
     Active Substance: PREDNISONE
     Indication: Rheumatoid arthritis
     Route: 048
  475. XELJANZ [Suspect]
     Active Substance: TOFACITINIB CITRATE
     Dosage: 10 MG, QD
     Route: 065
  476. XELJANZ [Suspect]
     Active Substance: TOFACITINIB CITRATE
     Route: 065
  477. XELJANZ [Suspect]
     Active Substance: TOFACITINIB CITRATE
     Route: 065
  478. XELJANZ [Suspect]
     Active Substance: TOFACITINIB CITRATE
     Route: 065
  479. XELJANZ [Suspect]
     Active Substance: TOFACITINIB CITRATE
     Route: 065
  480. XELJANZ [Suspect]
     Active Substance: TOFACITINIB CITRATE
     Indication: Rheumatoid arthritis
     Route: 048
  481. XELJANZ [Suspect]
     Active Substance: TOFACITINIB CITRATE
     Route: 048
  482. XELJANZ [Suspect]
     Active Substance: TOFACITINIB CITRATE
     Indication: Product used for unknown indication
     Route: 065
  483. XELJANZ [Suspect]
     Active Substance: TOFACITINIB CITRATE
     Route: 065
  484. COSENTYX [Concomitant]
     Active Substance: SECUKINUMAB
     Indication: Product used for unknown indication
     Route: 005
  485. COSENTYX [Concomitant]
     Active Substance: SECUKINUMAB
     Route: 005
  486. COSENTYX [Concomitant]
     Active Substance: SECUKINUMAB
     Route: 042
  487. COSENTYX [Concomitant]
     Active Substance: SECUKINUMAB
     Route: 065
  488. COSENTYX [Concomitant]
     Active Substance: SECUKINUMAB
     Indication: Rheumatoid arthritis
     Route: 042

REACTIONS (10)
  - Impaired healing [Fatal]
  - Hypoaesthesia [Fatal]
  - Injury [Fatal]
  - Intentional product use issue [Fatal]
  - Joint swelling [Fatal]
  - Liver injury [Fatal]
  - Lower limb fracture [Fatal]
  - Lung disorder [Fatal]
  - Lower respiratory tract infection [Fatal]
  - Muscle injury [Fatal]
